FAERS Safety Report 4366788-3 (Version None)
Quarter: 2004Q2

REPORT INFORMATION
  Report Type: 
  Country: None (occurrence: None)
  Receive Date: 20040526
  Receipt Date: 20040526
  Transmission Date: 20050107
  Serious: No
  Sender: FDA-Public Use
  Company Number: None

PATIENT

DRUGS (3)
  1. LIDOCAINE 2% W/EPINEPHRINE 1:200000 INJ [Suspect]
     Dosage: INJECTABLE
  2. XYLOCAINE HCL 1.2% W/ EPINEPHRINE 1-200,000 [Suspect]
     Dosage: INJECTABLE
  3. SUCCINYLCHOLINE CHLORIDE INJ [Suspect]
     Dosage: INJECTABLE

REACTIONS (1)
  - MEDICATION ERROR [None]
